FAERS Safety Report 13041601 (Version 1)
Quarter: 2016Q4

REPORT INFORMATION
  Report Type: Spontaneous
  Country: US (occurrence: US)
  Receive Date: 20161219
  Receipt Date: 20161219
  Transmission Date: 20170207
  Serious: Yes (Other)
  Sender: FDA-Public Use
  Company Number: US-ROCHE-1288297

PATIENT
  Age: 71 Year
  Sex: Female
  Weight: 69 kg

DRUGS (3)
  1. ZELBORAF [Suspect]
     Active Substance: VEMURAFENIB
     Indication: MALIGNANT MELANOMA
     Dosage: 4 (240 MG) TABS
     Route: 065
  2. ZELBORAF [Suspect]
     Active Substance: VEMURAFENIB
     Dosage: 3 (240 MG) TABS
     Route: 065
     Dates: end: 201308
  3. ZELBORAF [Suspect]
     Active Substance: VEMURAFENIB
     Route: 048
     Dates: start: 20130626

REACTIONS (6)
  - Swelling [Unknown]
  - Uveitis [Unknown]
  - Vitreous floaters [Unknown]
  - Feeling abnormal [Unknown]
  - Erythema [Unknown]
  - Eye inflammation [Unknown]

NARRATIVE: CASE EVENT DATE: 20130826
